FAERS Safety Report 9690686 (Version 2)
Quarter: 2013Q4

REPORT INFORMATION
  Report Type: Spontaneous
  Country: US (occurrence: US)
  Receive Date: 20131115
  Receipt Date: 20131230
  Transmission Date: 20140711
  Serious: Yes (Hospitalization)
  Sender: FDA-Public Use
  Company Number: US-UCBSA-102992

PATIENT
  Age: 45 Year
  Sex: Female
  Weight: 81.6 kg

DRUGS (18)
  1. CIMZIA [Suspect]
     Indication: CROHN^S DISEASE
     Route: 058
     Dates: start: 2010, end: 201311
  2. CIMZIA [Suspect]
     Indication: CROHN^S DISEASE
     Route: 058
     Dates: start: 20100629, end: 2010
  3. LORAZEPAM [Concomitant]
     Indication: ANXIETY
  4. MONTELUKAST [Concomitant]
     Indication: ASTHMA
  5. OMEPRAZOLE [Concomitant]
     Indication: GASTROOESOPHAGEAL REFLUX DISEASE
  6. APRISO [Concomitant]
     Indication: CROHN^S DISEASE
     Dosage: NUMBER OF INTAKES: FOUR PILLS TWICE A DAY
  7. ACETAZOLAMIDE [Concomitant]
     Indication: HEADACHE
  8. ATORZASTATIN [Concomitant]
     Indication: BLOOD CHOLESTEROL INCREASED
  9. RANEZA [Concomitant]
     Indication: CHEST PAIN
  10. MIRTAZAPINE [Concomitant]
     Indication: INSOMNIA
     Dosage: 1 TABLET AT BED TIME
  11. MERZAPTOPURINE [Concomitant]
     Indication: GASTRIC DISORDER
     Dosage: 2 TABLETS AT BEDTIME
  12. VESICARE [Concomitant]
     Indication: RENAL DISORDER
  13. ORANZAPINE [Concomitant]
     Indication: SCHIZOPHRENIA
     Dosage: ONE AT BEDTIME
  14. AMITIZA [Concomitant]
     Indication: CONSTIPATION
  15. BABY ASA [Concomitant]
     Indication: CARDIAC DISORDER
  16. MULTIVITAMIN [Concomitant]
     Indication: VITAMIN SUPPLEMENTATION
  17. SYMBICORT [Concomitant]
     Indication: ASTHMA
     Dosage: 2 PUFFS ONCE A DAY AT AM
  18. ALBUTEROL [Concomitant]
     Indication: ASTHMA
     Dosage: 1 PUFF AS NEEDED OCE EVERY 4 HOURS

REACTIONS (3)
  - Cerebrovascular accident [Recovered/Resolved]
  - Dizziness [Not Recovered/Not Resolved]
  - Dizziness [Not Recovered/Not Resolved]
